FAERS Safety Report 6320155-1 (Version None)
Quarter: 2009Q3

REPORT INFORMATION
  Report Type: 
  Country: None (occurrence: None)
  Receive Date: 20090822
  Receipt Date: 20081020
  Transmission Date: 20100115
  Serious: No
  Sender: FDA-Public Use
  Company Number: US-ABBOTT-08P-163-0483049-00

PATIENT
  Sex: Female

DRUGS (1)
  1. NIASPAN [Suspect]
     Indication: DRUG USE FOR UNKNOWN INDICATION
     Route: 048
     Dates: start: 20080819, end: 20080919

REACTIONS (7)
  - ARTHRALGIA [None]
  - CHILLS [None]
  - DEFAECATION URGENCY [None]
  - LIP SWELLING [None]
  - PRURITUS GENERALISED [None]
  - SKIN BURNING SENSATION [None]
  - SWELLING FACE [None]
